FAERS Safety Report 18765914 (Version 1)
Quarter: 2021Q1

REPORT INFORMATION
  Report Type: Spontaneous
  Country: US (occurrence: US)
  Receive Date: 20210121
  Receipt Date: 20210121
  Transmission Date: 20210419
  Serious: Yes (Hospitalization)
  Sender: FDA-Public Use
  Company Number: US-JNJFOC-20210110803

PATIENT
  Age: 39 Year
  Sex: Male

DRUGS (2)
  1. PARACETAMOL [Suspect]
     Active Substance: ACETAMINOPHEN
     Indication: PRODUCT USED FOR UNKNOWN INDICATION
     Dosage: 1 GR ACETAMINOPHEN (APAP) EVERY 4 HRS FOR SEVERAL DAYS
     Route: 048
  2. HYDROXYCHLOROQUINE [Concomitant]
     Active Substance: HYDROXYCHLOROQUINE
     Indication: COVID-19 PNEUMONIA
     Route: 065

REACTIONS (5)
  - Glucose-6-phosphate dehydrogenase deficiency [Unknown]
  - Overdose [Unknown]
  - Methaemoglobinaemia [Unknown]
  - Acute kidney injury [Unknown]
  - Acute hepatic failure [Unknown]
